FAERS Safety Report 6687904-4 (Version None)
Quarter: 2010Q2

REPORT INFORMATION
  Report Type: 
  Country: None (occurrence: None)
  Receive Date: 20100420
  Receipt Date: 20100407
  Transmission Date: 20101027
  Serious: No
  Sender: FDA-Public Use
  Company Number: US-JNJFOC-20100403027

PATIENT
  Sex: Female

DRUGS (8)
  1. FENTANYL CITRATE [Suspect]
     Indication: DRUG USE FOR UNKNOWN INDICATION
     Route: 062
  2. FENTANYL CITRATE [Suspect]
     Route: 062
  3. ACTAVIS FENTANYL TRANSDEMAL SYSTEM [Suspect]
     Indication: PAIN
     Route: 062
     Dates: start: 20100318, end: 20100326
  4. TOPAMAX [Concomitant]
     Indication: MIGRAINE
     Route: 048
  5. PROPRANOLOL [Concomitant]
     Indication: MIGRAINE
     Route: 048
  6. GLUCOPHAGE [Concomitant]
     Indication: DIABETES MELLITUS
     Route: 048
  7. SOMA [Concomitant]
     Indication: MUSCLE RELAXANT THERAPY
     Route: 048
  8. CYMBALTA [Concomitant]
     Indication: PAIN
     Route: 048

REACTIONS (8)
  - COLD SWEAT [None]
  - CONSTIPATION [None]
  - DRUG INEFFECTIVE [None]
  - HYPERHIDROSIS [None]
  - HYPOKINESIA [None]
  - INCORRECT DRUG ADMINISTRATION DURATION [None]
  - NAUSEA [None]
  - WRONG TECHNIQUE IN DRUG USAGE PROCESS [None]
